FAERS Safety Report 10345318 (Version 1)
Quarter: 2014Q3

REPORT INFORMATION
  Report Type: Spontaneous
  Country: IT (occurrence: None)
  Receive Date: 20140723
  Receipt Date: 20140723
  Transmission Date: 20150326
  Serious: Yes (Death, Hospitalization)
  Sender: FDA-Public Use
  Company Number: FK201402818

PATIENT
  Age: 56 Year
  Sex: Male

DRUGS (2)
  1. CISPLATIN (MANUFACTURER UNKNOWN) (CISPLATIN) (CISPLATIN) [Suspect]
     Active Substance: CISPLATIN
     Indication: LUNG NEOPLASM MALIGNANT
  2. PEMETREXED (PEMETREXED) [Concomitant]

REACTIONS (8)
  - Headache [None]
  - Posterior reversible encephalopathy syndrome [None]
  - Blindness [None]
  - Neurotoxicity [None]
  - Pain in extremity [None]
  - Somnolence [None]
  - Cerebral ischaemia [None]
  - Subarachnoid haemorrhage [None]
